FAERS Safety Report 10577670 (Version 15)
Quarter: 2016Q2

REPORT INFORMATION
  Report Type: Report from Study
  Country: SG (occurrence: SG)
  Receive Date: 20141111
  Receipt Date: 20160525
  Transmission Date: 20160815
  Serious: Yes (Death, Hospitalization)
  Sender: FDA-Public Use
  Company Number: SG-B.I. PHARMACEUTICALS,INC./RIDGEFIELD-2014-BI-49417BI

PATIENT
  Age: 59 Year
  Sex: Male

DRUGS (10)
  1. UREA. [Concomitant]
     Active Substance: UREA
     Indication: DRY SKIN PROPHYLAXIS
     Dosage: STRENGTH: 10%
     Route: 061
     Dates: start: 20141014
  2. HYPROMELLOSE [Concomitant]
     Active Substance: HYPROMELLOSES
     Indication: DRY EYE
  3. KETOPROFEN. [Concomitant]
     Active Substance: KETOPROFEN
     Indication: MUSCULOSKELETAL PAIN
     Route: 061
     Dates: start: 20150324
  4. MORPHINE SULPHATE [Concomitant]
     Active Substance: MORPHINE SULFATE
     Indication: PAIN
     Dosage: 30 MG
     Route: 048
     Dates: start: 20150714
  5. MEGESTROL ACETATE. [Concomitant]
     Active Substance: MEGESTROL ACETATE
     Indication: APPETITE DISORDER
     Dosage: 160 MG
     Route: 048
     Dates: start: 20150714
  6. MUPIROCIN. [Concomitant]
     Active Substance: MUPIROCIN
     Indication: PARONYCHIA
     Dosage: STRENGTH : 2%, FORMULATION: OINTMENT
     Route: 061
     Dates: start: 20150113
  7. ORAL AID [Concomitant]
     Indication: MUCOSAL INFLAMMATION
     Dosage: FORMULATION: LOTION
     Route: 061
     Dates: start: 20141230
  8. AFATINIB [Suspect]
     Active Substance: AFATINIB
     Indication: NON-SMALL CELL LUNG CANCER STAGE IV
     Dosage: 20 MG
     Route: 048
     Dates: start: 20141007, end: 20141012
  9. AFATINIB [Suspect]
     Active Substance: AFATINIB
     Dosage: 20 MG
     Route: 048
     Dates: start: 20141021, end: 20150714
  10. HYPROMELLOSE [Concomitant]
     Active Substance: HYPROMELLOSES
     Indication: CONJUNCTIVITIS
     Dosage: 3 ANZ
     Route: 050
     Dates: start: 20141230

REACTIONS (10)
  - Diarrhoea [Recovered/Resolved]
  - Decreased appetite [Recovered/Resolved]
  - Dyspnoea [Recovered/Resolved]
  - Abdominal discomfort [Recovered/Resolved]
  - Cardiac tamponade [Recovered/Resolved]
  - Malignant neoplasm progression [Fatal]
  - Peripheral swelling [Recovered/Resolved]
  - Pleural effusion [Recovered/Resolved]
  - Lethargy [Unknown]
  - Vomiting [Recovered/Resolved]

NARRATIVE: CASE EVENT DATE: 20141009
